FAERS Safety Report 15964674 (Version 1)
Quarter: 2019Q1

REPORT INFORMATION
  Report Type: Spontaneous
  Country: IT (occurrence: IT)
  Receive Date: 20190215
  Receipt Date: 20190215
  Transmission Date: 20190418
  Serious: Yes (Hospitalization)
  Sender: FDA-Public Use
  Company Number: IT-AUROBINDO-AUR-APL-2017-19599

PATIENT

DRUGS (1)
  1. PARACETAMOL [Suspect]
     Active Substance: ACETAMINOPHEN
     Indication: HYPERPYREXIA
     Dosage: 125 MG/KG, ONCE A DAY
     Route: 048
     Dates: start: 20120122, end: 20120123

REACTIONS (5)
  - Off label use [Recovering/Resolving]
  - Medication error [Recovering/Resolving]
  - Leukopenia [Recovering/Resolving]
  - Overdose [Recovering/Resolving]
  - Product administration error [Recovering/Resolving]

NARRATIVE: CASE EVENT DATE: 20120125
